FAERS Safety Report 7947423-1 (Version None)
Quarter: 2011Q4

REPORT INFORMATION
  Report Type: 
  Country: None (occurrence: None)
  Receive Date: 20111130
  Receipt Date: 20111119
  Transmission Date: 20120403
  Serious: Yes (Other)
  Sender: FDA-Public Use
  Company Number: GR-PAR PHARMACEUTICAL, INC-2011SCPR003446

PATIENT

DRUGS (15)
  1. DEXAMETHASONE [Suspect]
     Indication: SALVAGE THERAPY
  2. CYCLOPHOSPHAMIDE [Suspect]
     Indication: MULTIPLE MYELOMA
     Dosage: UNK, UNKNOWN
     Route: 065
  3. ETOPOSIDE [Suspect]
     Indication: SALVAGE THERAPY
     Dosage: AS BEAM CONDITIONING REGIMEN
     Route: 065
     Dates: start: 19981101
  4. CARMUSTINE [Suspect]
     Indication: MULTIPLE MYELOMA
     Dosage: UNK, UNKNOWN
     Route: 065
     Dates: start: 19981101
  5. MELPHALAN HYDROCHLORIDE [Suspect]
     Indication: MULTIPLE MYELOMA
     Dosage: 10 CYCLES, UNKNOWN
     Route: 065
     Dates: start: 19981101
  6. PREDNISONE TAB [Suspect]
     Indication: MULTIPLE MYELOMA
     Dosage: 10 CYCLES, UNKNOWN
     Route: 065
  7. INTERFERON ALFA [Suspect]
     Dosage: 1X10^6 IU, THRICE WEEKLY
     Route: 065
     Dates: end: 20050901
  8. IFOSFAMIDE [Suspect]
     Indication: SALVAGE THERAPY
  9. DEXAMETHASONE [Suspect]
     Indication: MULTIPLE MYELOMA
     Dosage: UNK, UNKNOWN
     Route: 065
  10. CISPLATIN [Suspect]
     Indication: SALVAGE THERAPY
  11. CYTARABINE [Suspect]
     Indication: MULTIPLE MYELOMA
     Dosage: UNK, UNKNOWN
     Route: 065
     Dates: start: 19981101
  12. CISPLATIN [Suspect]
     Indication: MULTIPLE MYELOMA
     Dosage: UNK, UNKNOWN
     Route: 065
  13. INTERFERON ALFA [Suspect]
     Indication: MULTIPLE MYELOMA
     Dosage: 3X10^6 IU, THRICE WEEKLY
     Route: 065
  14. IFOSFAMIDE [Suspect]
     Indication: MULTIPLE MYELOMA
     Dosage: UNK, UNKNOWN
     Route: 065
  15. ETOPOSIDE [Suspect]
     Indication: MULTIPLE MYELOMA
     Dosage: AS DICE REGIMEN
     Route: 065

REACTIONS (2)
  - REFRACTORY CYTOPENIA WITH MULTILINEAGE DYSPLASIA [None]
  - CYTOGENETIC ABNORMALITY [None]
